FAERS Safety Report 5074215-6 (Version None)
Quarter: 2006Q3

REPORT INFORMATION
  Report Type: 
  Country: None (occurrence: None)
  Receive Date: 20060803
  Receipt Date: 20060725
  Transmission Date: 20061208
  Serious: Yes (Other)
  Sender: FDA-Public Use
  Company Number: 2001-09-1175

PATIENT
  Age: 53 Year
  Sex: Male
  Weight: 73 kg

DRUGS (5)
  1. PEG-INTRON [Suspect]
     Indication: MALIGNANT MELANOMA STAGE II
     Dosage: 6-3 MCG/KG/WK SUBCUTANEOUS; SEE IMAGE
     Route: 058
     Dates: start: 20010613
  2. TANAKAN [Concomitant]
  3. ATORVASTATIN CALCIUM [Concomitant]
  4. OMEPRAZOLE [Concomitant]
  5. ACETAMINOPHEN [Concomitant]

REACTIONS (2)
  - CYTOLYTIC HEPATITIS [None]
  - FEBRILE NEUTROPENIA [None]
